FAERS Safety Report 5099219-9 (Version None)
Quarter: 2006Q3

REPORT INFORMATION
  Report Type: 
  Country: None (occurrence: None)
  Receive Date: 20060731
  Receipt Date: 20060531
  Transmission Date: 20061208
  Serious: Yes (Other)
  Sender: FDA-Public Use
  Company Number: 217614

PATIENT
  Sex: Female
  Weight: 111.6 kg

DRUGS (3)
  1. HERCEPTIN [Suspect]
     Indication: BREAST CANCER METASTATIC
     Dates: start: 20050610, end: 20050902
  2. CYTOXAN [Suspect]
     Indication: BREAST CANCER
  3. TAXOL [Concomitant]

REACTIONS (1)
  - PULMONARY FIBROSIS [None]
